FAERS Safety Report 22368802 (Version 3)
Quarter: 2023Q4

REPORT INFORMATION
  Report Type: Spontaneous
  Country: US (occurrence: US)
  Receive Date: 20230525
  Receipt Date: 20231019
  Transmission Date: 20240110
  Serious: No
  Sender: FDA-Public Use
  Company Number: US-Calliditas-2023CAL00499

PATIENT
  Age: 49 Year
  Sex: Female

DRUGS (1)
  1. TARPEYO [Suspect]
     Active Substance: BUDESONIDE
     Indication: IgA nephropathy
     Dosage: 16 MG (4 MG CAPSULES) ONCE DAILY
     Route: 050
     Dates: start: 20220526, end: 20231002

REACTIONS (4)
  - Flank pain [Unknown]
  - Intentional underdose [Unknown]
  - Product dose omission issue [Unknown]
  - Disease progression [Unknown]
